FAERS Safety Report 14116605 (Version 1)
Quarter: 2017Q4

REPORT INFORMATION
  Report Type: Spontaneous
  Country: BR (occurrence: BR)
  Receive Date: 20171023
  Receipt Date: 20171023
  Transmission Date: 20180321
  Serious: Yes (Other)
  Sender: FDA-Public Use
  Company Number: BR-MYLANLABS-2017M1065807

PATIENT
  Age: 56 Year
  Sex: Male

DRUGS (2)
  1. LIDOCAINE. [Suspect]
     Active Substance: LIDOCAINE
     Indication: LOCAL ANAESTHESIA
     Dosage: 2%
     Route: 065
  2. EPINEPHRINE. [Suspect]
     Active Substance: EPINEPHRINE
     Indication: VASOCONSTRICTION
     Dosage: 1:100000
     Route: 065

REACTIONS (2)
  - Osteoradionecrosis [Recovered/Resolved]
  - Tongue necrosis [Recovering/Resolving]
